FAERS Safety Report 7011869-9 (Version None)
Quarter: 2010Q3

REPORT INFORMATION
  Report Type: 
  Country: None (occurrence: None)
  Receive Date: 20100924
  Receipt Date: 20100922
  Transmission Date: 20110219
  Serious: Yes (Other)
  Sender: FDA-Public Use
  Company Number: US-ASTRAZENECA-2006UW11990

PATIENT
  Age: 47 Year
  Sex: Female
  Weight: 117.9 kg

DRUGS (40)
  1. SEROQUEL [Suspect]
     Indication: INSOMNIA
     Route: 048
     Dates: start: 19970101, end: 20060207
  2. SEROQUEL [Suspect]
     Indication: BIPOLAR DISORDER
     Route: 048
     Dates: start: 19970101, end: 20060207
  3. SEROQUEL [Suspect]
     Route: 048
     Dates: start: 19970101, end: 20000101
  4. SEROQUEL [Suspect]
     Route: 048
     Dates: start: 19970101, end: 20000101
  5. SEROQUEL [Suspect]
     Route: 048
     Dates: start: 20020101, end: 20030101
  6. SEROQUEL [Suspect]
     Route: 048
     Dates: start: 20020101, end: 20030101
  7. SEROQUEL [Suspect]
     Route: 048
     Dates: start: 20040101, end: 20060201
  8. SEROQUEL [Suspect]
     Route: 048
     Dates: start: 20040101, end: 20060201
  9. SEROQUEL [Suspect]
     Dosage: 50 MG AT NIGHT TO 100 MG TID
     Route: 048
     Dates: start: 20040324
  10. SEROQUEL [Suspect]
     Dosage: 50 MG AT NIGHT TO 100 MG TID
     Route: 048
     Dates: start: 20040324
  11. ABILIFY [Concomitant]
     Dates: start: 20060101
  12. CLOZARIL [Concomitant]
     Dates: start: 19970101
  13. HALDOL [Concomitant]
     Dates: start: 19970101, end: 20000101
  14. RISPERDAL [Concomitant]
     Dates: start: 19970101, end: 20050101
  15. STELAZINE [Concomitant]
     Dates: start: 19990101
  16. FENTERMINE [Concomitant]
     Indication: WEIGHT DECREASED
  17. GEODON [Concomitant]
     Dates: start: 20071101
  18. SYNTHROID [Concomitant]
  19. KLONOPIN [Concomitant]
     Indication: ANXIETY
     Dates: start: 20020415, end: 20060127
  20. KLONOPIN [Concomitant]
     Indication: SLEEP DISORDER
     Dates: start: 20020415, end: 20060127
  21. KLONOPIN [Concomitant]
     Dates: start: 20071203
  22. KLONOPIN [Concomitant]
     Dates: start: 20071203
  23. TRAZODONE HCL [Concomitant]
     Indication: SLEEP DISORDER
     Dosage: 50 MG HS TO 100 MG HS
     Dates: start: 20020415
  24. DEPAKOTE [Concomitant]
     Dates: start: 20020415
  25. ENALAPRIL MALEATE [Concomitant]
     Dates: start: 20060705
  26. TOPAMAX [Concomitant]
     Dates: start: 20030611
  27. PROMETHAZINE [Concomitant]
     Dates: start: 20030202
  28. ZYPREXA [Concomitant]
     Dates: start: 19970101, end: 20060101
  29. ZYPREXA [Concomitant]
     Dosage: 2.5 MG TO 10 MG
     Dates: start: 20030611
  30. ZOMIG [Concomitant]
     Indication: MIGRAINE
     Dates: start: 20040107, end: 20060127
  31. ZANTAC [Concomitant]
     Indication: GASTROOESOPHAGEAL REFLUX DISEASE
     Dosage: 150
     Dates: start: 20050427
  32. FLURAZEPAM [Concomitant]
     Dates: start: 20071203
  33. DOXEPIN HCL [Concomitant]
     Dates: start: 20071203
  34. AMBIEN [Concomitant]
     Dates: start: 20080101
  35. LUNESTA [Concomitant]
     Dates: start: 20080101
  36. CRESTOR [Concomitant]
  37. PRAVASTATIN [Concomitant]
     Dates: start: 20090101
  38. LISINOPRIL [Concomitant]
     Dates: start: 20090101
  39. REQUIP [Concomitant]
     Dates: start: 20090618
  40. HYDROXYZINE [Concomitant]
     Dates: end: 20090101

REACTIONS (22)
  - BLOOD TRIGLYCERIDES INCREASED [None]
  - CALCULUS URETERIC [None]
  - CELLULITIS [None]
  - CONVULSION [None]
  - DIABETES MELLITUS INADEQUATE CONTROL [None]
  - DIABETIC COMA [None]
  - DIABETIC COMPLICATION [None]
  - DIABETIC KETOACIDOSIS [None]
  - DRUG HYPERSENSITIVITY [None]
  - DYSLIPIDAEMIA [None]
  - GASTRIC DISORDER [None]
  - GASTRIC ULCER [None]
  - GASTRIC ULCER HAEMORRHAGE [None]
  - HYDRONEPHROSIS [None]
  - HYPERCHOLESTEROLAEMIA [None]
  - HYPERLIPIDAEMIA [None]
  - MIGRAINE [None]
  - NEPHROLITHIASIS [None]
  - NEUROPATHY PERIPHERAL [None]
  - RENAL DISORDER [None]
  - SLEEP APNOEA SYNDROME [None]
  - TYPE 2 DIABETES MELLITUS [None]
